FAERS Safety Report 6542413-8 (Version None)
Quarter: 2010Q1

REPORT INFORMATION
  Report Type: 
  Country: None (occurrence: None)
  Receive Date: 20100119
  Receipt Date: 20100113
  Transmission Date: 20100710
  Serious: No
  Sender: FDA-Public Use
  Company Number: US-B.I. PHARMACEUTICALS,INC./RIDGEFIELD-2009-BP-14120BP

PATIENT
  Sex: Male
  Weight: 79.38 kg

DRUGS (7)
  1. SPIRIVA [Suspect]
     Indication: EMPHYSEMA
     Dosage: 18 MCG
     Route: 055
     Dates: start: 20060101
  2. SPIRIVA [Suspect]
     Indication: ASTHMA
  3. SPIRIVA [Suspect]
     Indication: CHRONIC OBSTRUCTIVE PULMONARY DISEASE
  4. TRAVATAN [Concomitant]
     Dosage: 600 MG
  5. LEVOTHYROXINE SODIUM [Concomitant]
     Dosage: 0.1 MG
  6. QVAR 40 [Concomitant]
  7. NASONEX [Concomitant]

REACTIONS (1)
  - BRONCHITIS [None]
